FAERS Safety Report 7402776-8 (Version None)
Quarter: 2011Q2

REPORT INFORMATION
  Report Type: 
  Country: None (occurrence: None)
  Receive Date: 20110408
  Receipt Date: 20110325
  Transmission Date: 20111010
  Serious: Yes (Other)
  Sender: FDA-Public Use
  Company Number: PHHY2011BR25511

PATIENT
  Sex: Female

DRUGS (2)
  1. RASILEZ HCT [Suspect]
     Dosage: 300/12.5 MG
  2. METFORMIN HCL [Suspect]
     Dosage: 850 MG, UNK

REACTIONS (3)
  - ASTHENIA [None]
  - MUSCULAR WEAKNESS [None]
  - GAIT DISTURBANCE [None]
